FAERS Safety Report 8711532 (Version 3)
Quarter: 2012Q4

REPORT INFORMATION
  Report Type: 
  Country: US (occurrence: US)
  Receive Date: 20120807
  Receipt Date: 20121210
  Transmission Date: 20130627
  Serious: Yes (Death, Life-Threatening, Hospitalization, Disabling, Other)
  Sender: FDA-Public Use
  Company Number: US-GLAXOSMITHKLINE-A0988351A

PATIENT
  Age: 53 Year
  Sex: Female
  Weight: 96.8 kg

DRUGS (17)
  1. TYKERB [Suspect]
     Indication: BREAST CANCER
     Dosage: 1250MG Per day
     Route: 048
     Dates: start: 20100913
  2. PROCHLORPERAZINE [Concomitant]
  3. KEPPRA [Concomitant]
  4. DILAUDID [Concomitant]
  5. XANAX [Concomitant]
  6. MORPHINE [Concomitant]
  7. DECADRON [Concomitant]
  8. LASIX [Concomitant]
  9. ZOFRAN [Concomitant]
  10. CHERATUSSIN [Concomitant]
  11. LACTULOSE [Concomitant]
  12. CIPRO [Concomitant]
  13. ROXANOL [Concomitant]
  14. DUONEB [Concomitant]
  15. DEXAMETHASONE [Concomitant]
  16. FUROSEMIDE [Concomitant]
  17. LOVENOX [Concomitant]

REACTIONS (18)
  - Breast cancer metastatic [Fatal]
  - Pneumonia [Unknown]
  - Pulmonary embolism [Unknown]
  - Hip fracture [Unknown]
  - Bacteraemia [Unknown]
  - Ascites [Unknown]
  - Deep vein thrombosis [Unknown]
  - Impaired healing [Unknown]
  - Infection [Unknown]
  - Thrombocytopenia [Unknown]
  - Neutropenia [Unknown]
  - Anaemia of chronic disease [Unknown]
  - Lung infiltration [Unknown]
  - Pleural effusion [Unknown]
  - Splenomegaly [Unknown]
  - Fatigue [Unknown]
  - Asthenia [Unknown]
  - Osteolysis [Unknown]
